FAERS Safety Report 14313588 (Version 1)
Quarter: 2017Q4

REPORT INFORMATION
  Report Type: Spontaneous
  Country: LT (occurrence: LT)
  Receive Date: 20171221
  Receipt Date: 20171221
  Transmission Date: 20180321
  Serious: Yes (Death, Hospitalization, Other)
  Sender: FDA-Public Use
  Company Number: LT-009507513-1712LTU005893

PATIENT
  Age: 66 Year
  Sex: Female

DRUGS (2)
  1. INTERFERON ALFA-2B [Suspect]
     Active Substance: INTERFERON ALFA-2B
     Indication: RENAL CANCER
     Dosage: 6 MILLION IU, TIW
     Route: 058
     Dates: start: 20111109, end: 201212
  2. INTERFERON ALFA-2B [Suspect]
     Active Substance: INTERFERON ALFA-2B
     Indication: LUNG NEOPLASM MALIGNANT

REACTIONS (9)
  - Pneumonia [Unknown]
  - General physical health deterioration [Unknown]
  - Neurological decompensation [Unknown]
  - Anaemia [Unknown]
  - Death [Fatal]
  - Metastases to central nervous system [Unknown]
  - Asthenia [Unknown]
  - Viral infection [Unknown]
  - Pyrexia [Unknown]

NARRATIVE: CASE EVENT DATE: 201212
